FAERS Safety Report 23562027 (Version 1)
Quarter: 2024Q1

REPORT INFORMATION
  Report Type: Spontaneous
  Country: US (occurrence: US)
  Receive Date: 20240226
  Receipt Date: 20240226
  Transmission Date: 20240410
  Serious: No
  Sender: FDA-Public Use
  Company Number: US-862174955-ML2024-01039

PATIENT
  Age: 76 Year
  Sex: Female
  Weight: 52.1 kg

DRUGS (3)
  1. DORZOLAMIDE HYDROCHLORIDE OPHTHALMIC SOLUTION [Suspect]
     Active Substance: DORZOLAMIDE HYDROCHLORIDE
     Indication: Glaucoma
     Dosage: DOSE:IN RIGHT EYE
     Route: 047
     Dates: start: 20240105
  2. Brimonidine Tartrate-Timolol Maleate Ophthalmic solution [Concomitant]
     Indication: Glaucoma
     Route: 047
  3. PREDNISOLONE [Concomitant]
     Active Substance: PREDNISOLONE
     Indication: Glaucoma
     Route: 047

REACTIONS (4)
  - Incorrect dose administered [Unknown]
  - Product container issue [Unknown]
  - Product dose omission issue [Unknown]
  - No adverse event [Unknown]
